FAERS Safety Report 12738567 (Version 3)
Quarter: 2017Q2

REPORT INFORMATION
  Report Type: Spontaneous
  Country: US (occurrence: US)
  Receive Date: 20160912
  Receipt Date: 20170502
  Transmission Date: 20170830
  Serious: Yes (Other)
  Sender: FDA-Public Use
  Company Number: US-SA-2016SA141223

PATIENT
  Age: 64 Year
  Sex: Male

DRUGS (7)
  1. TOUJEO [Suspect]
     Active Substance: INSULIN GLARGINE
     Indication: TYPE 2 DIABETES MELLITUS
     Dosage: DOSE:100 UNIT(S)
     Route: 065
  2. HUMALOG [Concomitant]
     Active Substance: INSULIN LISPRO
  3. TOUJEO [Suspect]
     Active Substance: INSULIN GLARGINE
     Indication: TYPE 2 DIABETES MELLITUS
     Dosage: DOSE:100 UNIT(S)
     Route: 065
  4. SOLOSTAR [Suspect]
     Active Substance: DEVICE
     Indication: TYPE 2 DIABETES MELLITUS
  5. LANTUS [Concomitant]
     Active Substance: INSULIN GLARGINE
  6. SOLOSTAR [Suspect]
     Active Substance: DEVICE
     Indication: TYPE 2 DIABETES MELLITUS
  7. NOVOLOG [Concomitant]
     Active Substance: INSULIN ASPART

REACTIONS (5)
  - Blood glucose increased [Unknown]
  - Product use issue [Unknown]
  - Device use issue [Unknown]
  - Myocardial infarction [Unknown]
  - Malaise [Unknown]

NARRATIVE: CASE EVENT DATE: 201701
